FAERS Safety Report 21281182 (Version 1)
Quarter: 2022Q3

REPORT INFORMATION
  Report Type: Spontaneous
  Country: US (occurrence: None)
  Receive Date: 20220831
  Receipt Date: 20220831
  Transmission Date: 20221027
  Serious: Yes (Other)
  Sender: FDA-Public Use
  Company Number: None

PATIENT
  Age: 50 Year
  Sex: Male

DRUGS (1)
  1. CAPECITABINE [Suspect]
     Active Substance: CAPECITABINE
     Dosage: 2150 MG BID ORAL
     Route: 048
     Dates: start: 202206

REACTIONS (2)
  - Therapy interrupted [None]
  - Nausea [None]

NARRATIVE: CASE EVENT DATE: 20220831
